FAERS Safety Report 14280005 (Version 1)
Quarter: 2017Q4

REPORT INFORMATION
  Report Type: Spontaneous
  Country: US (occurrence: US)
  Receive Date: 20171212
  Receipt Date: 20171212
  Transmission Date: 20180321
  Serious: Yes (Other)
  Sender: FDA-Public Use
  Company Number: None

PATIENT
  Age: 46 Year
  Sex: Male
  Weight: 78.75 kg

DRUGS (3)
  1. BENICAR [Concomitant]
     Active Substance: OLMESARTAN MEDOXOMIL
  2. RESTASIS [Suspect]
     Active Substance: CYCLOSPORINE
     Dosage: ?          QUANTITY:60 DROP(S);?
     Route: 047
     Dates: start: 20170401, end: 20170719
  3. ALBUTEROL INHALER [Concomitant]
     Active Substance: ALBUTEROL

REACTIONS (1)
  - Eyelid cyst [None]

NARRATIVE: CASE EVENT DATE: 20170701
